FAERS Safety Report 16772074 (Version 1)
Quarter: 2019Q3

REPORT INFORMATION
  Report Type: Spontaneous
  Country: US (occurrence: US)
  Receive Date: 20190904
  Receipt Date: 20190904
  Transmission Date: 20191005
  Serious: Yes (Other)
  Sender: FDA-Public Use
  Company Number: US-PFIZER INC-2019009776

PATIENT
  Age: 68 Year
  Sex: Female
  Weight: 64.41 kg

DRUGS (1)
  1. FLECTOR [Suspect]
     Active Substance: DICLOFENAC EPOLAMINE
     Indication: BACK PAIN
     Dosage: UNK
     Route: 062

REACTIONS (3)
  - Autoimmune thyroiditis [Unknown]
  - Fibromyalgia [Unknown]
  - Osteoarthritis [Unknown]
